FAERS Safety Report 19722938 (Version 1)
Quarter: 2021Q3

REPORT INFORMATION
  Report Type: Spontaneous
  Country: FR (occurrence: FR)
  Receive Date: 20210819
  Receipt Date: 20210819
  Transmission Date: 20211014
  Serious: Yes (Other)
  Sender: FDA-Public Use
  Company Number: FR-TEVA-2021-FR-1942503

PATIENT
  Age: 30 Year
  Sex: Male

DRUGS (4)
  1. PREGABALINE [Suspect]
     Active Substance: PREGABALIN
     Route: 065
  2. TEMAZEPAM. [Suspect]
     Active Substance: TEMAZEPAM
     Route: 065
  3. CANNABIS [Suspect]
     Active Substance: CANNABIS SATIVA SUBSP. INDICA TOP
     Route: 065
  4. DIAZEPAM. [Suspect]
     Active Substance: DIAZEPAM
     Route: 065

REACTIONS (1)
  - Altered state of consciousness [Unknown]
